FAERS Safety Report 6045306-8 (Version None)
Quarter: 2009Q1

REPORT INFORMATION
  Report Type: 
  Country: None (occurrence: None)
  Receive Date: 20090121
  Receipt Date: 20090112
  Transmission Date: 20090719
  Serious: Yes (Other)
  Sender: FDA-Public Use
  Company Number: PHRM2007FR02067

PATIENT
  Sex: Female

DRUGS (2)
  1. NEORAL [Suspect]
     Indication: LIVER TRANSPLANT
     Dosage: 85 MG, BID
     Route: 048
     Dates: start: 19920101
  2. GALENIC /ETHINYLESTRADIOL/GESTODENE/ [Interacting]
     Indication: CONTRACEPTION
     Dosage: UNK
     Route: 048
     Dates: start: 20031124, end: 20071019

REACTIONS (5)
  - DRUG INTERACTION [None]
  - IRON DEFICIENCY ANAEMIA [None]
  - MENOMETRORRHAGIA [None]
  - MENORRHAGIA [None]
  - MENSTRUATION IRREGULAR [None]
